FAERS Safety Report 7337532-2 (Version None)
Quarter: 2011Q1

REPORT INFORMATION
  Report Type: 
  Country: None (occurrence: None)
  Receive Date: 20110308
  Receipt Date: 20090716
  Transmission Date: 20110831
  Serious: Yes (Other)
  Sender: FDA-Public Use
  Company Number: US-BAYER-200926367NA

PATIENT
  Sex: Male
  Weight: 99.773 kg

DRUGS (49)
  1. XANAX [Concomitant]
     Indication: PRODUCT USED FOR UNKNOWN INDICATION
     Dosage: 0.25MG AS NEEDED
     Route: 048
  2. CEFUROXIME [Concomitant]
     Dosage: 1.5GRAM
     Route: 042
     Dates: start: 20030306, end: 20030306
  3. LASIX [Concomitant]
     Dosage: 20MG
     Route: 042
     Dates: start: 20030306, end: 20030306
  4. VASOPRESSIN [Concomitant]
     Indication: PRODUCT USED FOR UNKNOWN INDICATION
     Dosage: TITRATED
     Route: 042
     Dates: start: 20030306, end: 20030306
  5. NORVASC [Concomitant]
     Indication: PRODUCT USED FOR UNKNOWN INDICATION
     Dosage: 10MG DAILY
     Route: 048
     Dates: end: 20030311
  6. MORPHINE [Concomitant]
     Dosage: UNK
     Route: 030
     Dates: start: 20030306, end: 20030308
  7. DARVOCET-N 100 [Concomitant]
     Indication: PRODUCT USED FOR UNKNOWN INDICATION
     Dosage: 2 TABLETS AS NEEDED
     Route: 048
     Dates: start: 20030308, end: 20030311
  8. METOPROLOL [Concomitant]
     Indication: PRODUCT USED FOR UNKNOWN INDICATION
     Dosage: 25MG TWICE DAILY
     Route: 048
     Dates: start: 20030307, end: 20030311
  9. AVANDIA [Concomitant]
     Indication: PRODUCT USED FOR UNKNOWN INDICATION
     Dosage: 2MG DAILY
     Route: 048
     Dates: start: 20030304, end: 20030311
  10. INSULIN [Concomitant]
     Dosage: 10 UNITS
     Route: 042
     Dates: start: 20030306, end: 20030306
  11. CALCIUM CHLORIDE [Concomitant]
     Indication: PRODUCT USED FOR UNKNOWN INDICATION
     Dosage: 1GRAM
     Route: 042
     Dates: start: 20030306, end: 20030306
  12. NEO-SYNEPHRINOL [Concomitant]
     Indication: PRODUCT USED FOR UNKNOWN INDICATION
     Dosage: 2.3MG
     Route: 042
     Dates: start: 20030306, end: 20030306
  13. TRASYLOL [Suspect]
     Dosage: 2 MILLION KIU LOADING DOSE
     Dates: start: 20030306, end: 20030306
  14. LEVOXYL [Concomitant]
     Indication: PRODUCT USED FOR UNKNOWN INDICATION
     Dosage: 100MCG DAILY
     Route: 048
  15. HYDROCHLOROTHIAZIDE [Concomitant]
     Indication: PRODUCT USED FOR UNKNOWN INDICATION
     Dosage: 25MG DAILY
     Route: 048
     Dates: start: 20030311
  16. ATENOLOL [Concomitant]
     Indication: PRODUCT USED FOR UNKNOWN INDICATION
     Dosage: 50MG DAILY
     Route: 048
     Dates: end: 20030311
  17. GEMFIBROZIL [Concomitant]
     Indication: PRODUCT USED FOR UNKNOWN INDICATION
     Dosage: 600MG DAILY
     Route: 048
     Dates: start: 20030304, end: 20050307
  18. ASPIRIN [Concomitant]
     Indication: PRODUCT USED FOR UNKNOWN INDICATION
     Dosage: 81MG DAILY
     Route: 048
     Dates: start: 20030311
  19. ZALEPLON [Concomitant]
     Indication: PRODUCT USED FOR UNKNOWN INDICATION
     Dosage: 5MG AS NEEDED
     Route: 048
     Dates: start: 20030304, end: 20030304
  20. VERSED [Concomitant]
     Indication: PRODUCT USED FOR UNKNOWN INDICATION
     Dosage: 5MG ONE TIME DOSE
     Route: 030
     Dates: start: 20030304, end: 20030304
  21. ACTOS [Concomitant]
     Indication: PRODUCT USED FOR UNKNOWN INDICATION
     Dosage: 2MG DAILY
     Route: 048
     Dates: end: 20060109
  22. AMIODARONE [Concomitant]
     Indication: PRODUCT USED FOR UNKNOWN INDICATION
     Dosage: 20MG THREE TIMES DAILY
     Route: 048
     Dates: start: 20030307
  23. CEFUROXIME [Concomitant]
     Indication: PRODUCT USED FOR UNKNOWN INDICATION
     Dosage: 1.5GRAMS EVERY 12 HOURS
     Route: 042
     Dates: start: 20030306, end: 20030307
  24. MEPERIDINE HCL [Concomitant]
     Indication: PRODUCT USED FOR UNKNOWN INDICATION
     Dosage: 20MG AS NEEDED
     Route: 042
     Dates: start: 20030306, end: 20030306
  25. COZAAR [Concomitant]
     Indication: PRODUCT USED FOR UNKNOWN INDICATION
     Dosage: 50MG DAILY
     Route: 048
     Dates: start: 20030304, end: 20030311
  26. PROTAMINE SULFATE [Concomitant]
     Indication: PRODUCT USED FOR UNKNOWN INDICATION
     Dosage: 500MG
     Route: 042
     Dates: start: 20030306, end: 20030306
  27. POTASSIUM CHLORIDE [Concomitant]
     Dosage: 20MEQ
     Route: 042
     Dates: start: 20030306, end: 20030306
  28. DIOVAN [Concomitant]
     Indication: PRODUCT USED FOR UNKNOWN INDICATION
     Dosage: 50MG DAILY LONG TERM
     Route: 048
     Dates: end: 20030311
  29. LASIX [Concomitant]
     Indication: PRODUCT USED FOR UNKNOWN INDICATION
     Dosage: 40MG
     Route: 048
     Dates: start: 20030307, end: 20030311
  30. INSULIN [Concomitant]
     Indication: PRODUCT USED FOR UNKNOWN INDICATION
     Dosage: UNK
     Route: 042
     Dates: start: 20030306, end: 20030310
  31. INSULIN [Concomitant]
     Dosage: UNK
     Route: 058
     Dates: start: 20030306, end: 20030310
  32. PERCOCET [Concomitant]
     Indication: PRODUCT USED FOR UNKNOWN INDICATION
     Dosage: 5/325MG AS NEEDED
     Route: 048
     Dates: start: 20030311
  33. HEPARIN [Concomitant]
     Indication: PRODUCT USED FOR UNKNOWN INDICATION
     Dosage: MULTIPLE DOSES
     Route: 042
     Dates: start: 20030306, end: 20030306
  34. ZOCOR [Concomitant]
     Indication: PRODUCT USED FOR UNKNOWN INDICATION
     Dosage: 10MG DAILY
     Route: 048
  35. CELEBREX [Concomitant]
     Indication: PRODUCT USED FOR UNKNOWN INDICATION
     Dosage: 1 TABLET DAILY
     Route: 048
     Dates: start: 20040128, end: 20040927
  36. TEMAZEPAM [Concomitant]
     Indication: PRODUCT USED FOR UNKNOWN INDICATION
     Dosage: 30MG AS NEEDED
     Route: 048
     Dates: start: 20030309, end: 20030309
  37. POTASSIUM CHLORIDE [Concomitant]
     Indication: PRODUCT USED FOR UNKNOWN INDICATION
     Dosage: 20MEQ - 40MEQ AS NEEDED
     Route: 042
     Dates: start: 20030308, end: 20030308
  38. TOPROL-XL [Concomitant]
     Indication: PRODUCT USED FOR UNKNOWN INDICATION
     Dosage: 50MG DAILLY
     Route: 048
     Dates: start: 20030311
  39. LASIX [Concomitant]
     Dosage: 40MG
     Route: 042
     Dates: start: 20030307, end: 20030311
  40. MORPHINE [Concomitant]
     Indication: PRODUCT USED FOR UNKNOWN INDICATION
     Dosage: UNK
     Route: 042
     Dates: start: 20030306, end: 20030308
  41. FAMOTIDINE [Concomitant]
     Indication: PRODUCT USED FOR UNKNOWN INDICATION
     Dosage: 20MG TWICE DAILY
     Route: 048
     Dates: start: 20030306, end: 20030311
  42. LOVENOX [Concomitant]
     Indication: PRODUCT USED FOR UNKNOWN INDICATION
     Dosage: 100MG ONE TIME DOSE
     Route: 058
     Dates: start: 20030304, end: 20030304
  43. NIFEREX [Concomitant]
     Indication: PRODUCT USED FOR UNKNOWN INDICATION
     Dosage: 150MG TWICE DAILY
     Route: 048
     Dates: start: 20030309, end: 20030309
  44. MORPHINE [Concomitant]
     Dosage: 4MG
     Route: 042
     Dates: start: 20030306, end: 20030306
  45. DOBUTAMINE HCL [Concomitant]
     Indication: PRODUCT USED FOR UNKNOWN INDICATION
     Dosage: TITRATED
     Route: 042
     Dates: start: 20030306, end: 20030307
  46. TRASYLOL [Suspect]
     Indication: CORONARY ARTERY BYPASS
     Dosage: 500 K/HR DRIP
     Route: 042
     Dates: start: 20030306, end: 20030306
  47. FAMOTIDINE [Concomitant]
     Dosage: 20MG TWICE DAILY
     Route: 042
     Dates: start: 20030306, end: 20030311
  48. DOPAMINE [Concomitant]
     Indication: PRODUCT USED FOR UNKNOWN INDICATION
     Dosage: 2.5MCG/KG/MIN
     Route: 042
     Dates: start: 20030307, end: 20030308
  49. LIDOCAINE [Concomitant]
     Indication: PRODUCT USED FOR UNKNOWN INDICATION
     Dosage: 100MG
     Route: 042
     Dates: start: 20030306, end: 20030306

REACTIONS (9)
  - RENAL IMPAIRMENT [None]
  - RENAL FAILURE [None]
  - PAIN [None]
  - FEAR [None]
  - UNEVALUABLE EVENT [None]
  - RENAL INJURY [None]
  - STRESS [None]
  - EMOTIONAL DISTRESS [None]
  - ANXIETY [None]
